FAERS Safety Report 18551874 (Version 1)
Quarter: 2020Q4

REPORT INFORMATION
  Report Type: Spontaneous
  Country: NL (occurrence: NL)
  Receive Date: 20201126
  Receipt Date: 20201126
  Transmission Date: 20210114
  Serious: Yes (Hospitalization)
  Sender: FDA-Public Use
  Company Number: NVSC2020NL109967

PATIENT
  Sex: Female
  Weight: 53 kg

DRUGS (1)
  1. ACETYLSALICYLIC ACID [Suspect]
     Active Substance: ASPIRIN
     Indication: PROPHYLAXIS
     Dosage: 80 MG, QD (TABLET, 80 MG (MILLIGRAM), 1 KEER PER DAG, 1)
     Route: 048
     Dates: start: 20191203, end: 20191224

REACTIONS (2)
  - Maternal exposure during pregnancy [Unknown]
  - Haemorrhage in pregnancy [Recovered/Resolved]
